FAERS Safety Report 16783759 (Version 2)
Quarter: 2020Q2

REPORT INFORMATION
  Report Type: Report from Study
  Country: None (occurrence: US)
  Receive Date: 20190908
  Receipt Date: 20200402
  Transmission Date: 20200713
  Serious: Yes (Other)
  Sender: FDA-Public Use
  Company Number: US-ABBVIE-18K-163-2579550-00

PATIENT
  Sex: Female

DRUGS (2)
  1. HUMIRA [Suspect]
     Active Substance: ADALIMUMAB
     Route: 058
     Dates: start: 201903
  2. HUMIRA [Suspect]
     Active Substance: ADALIMUMAB
     Indication: RHEUMATOID ARTHRITIS
     Route: 058
     Dates: start: 2014, end: 201902

REACTIONS (12)
  - Injection site pain [Unknown]
  - Fat tissue decreased [Recovering/Resolving]
  - Eyelid operation [Unknown]
  - Pain in extremity [Recovering/Resolving]
  - Rheumatoid arthritis [Unknown]
  - Weight increased [Recovering/Resolving]
  - Mobility decreased [Recovering/Resolving]
  - Hypotension [Unknown]
  - Bone density decreased [Recovering/Resolving]
  - Musculoskeletal pain [Recovering/Resolving]
  - Hypertension [Recovering/Resolving]
  - Osteomyelitis [Recovering/Resolving]

NARRATIVE: CASE EVENT DATE: 2014
